FAERS Safety Report 9301301 (Version 1)
Quarter: 2013Q2

REPORT INFORMATION
  Report Type: Spontaneous
  Country: US (occurrence: US)
  Receive Date: 20130521
  Receipt Date: 20130521
  Transmission Date: 20140414
  Serious: Yes (Other)
  Sender: FDA-Public Use
  Company Number: US-ASTRAZENECA-2013SE33692

PATIENT
  Age: 50 Year
  Sex: Female
  Weight: 61.7 kg

DRUGS (7)
  1. PULMICORT FLEXHALER [Suspect]
     Indication: ASTHMA
     Dosage: 180 MCG 1 PUFF BID
     Route: 055
     Dates: start: 20130510, end: 20130511
  2. SINGULAIR [Suspect]
     Indication: ASTHMA
     Route: 048
  3. MORPHINE [Suspect]
     Route: 065
  4. UNSPECIFIED IV MEDICATION [Suspect]
     Route: 042
  5. BACTRIM [Concomitant]
  6. NICKEL [Concomitant]
  7. PROAIR [Concomitant]

REACTIONS (19)
  - Dyspnoea [Unknown]
  - Throat tightness [Unknown]
  - Dysphagia [Unknown]
  - Tongue blistering [Unknown]
  - Tachycardia [Unknown]
  - Oral mucosal blistering [Unknown]
  - Dysgeusia [Unknown]
  - Eye swelling [Unknown]
  - Asthma [Unknown]
  - Mucosa vesicle [Unknown]
  - Cheilitis [Unknown]
  - Lip swelling [Unknown]
  - Throat irritation [Unknown]
  - Erythema [Unknown]
  - Cough [Unknown]
  - Swelling face [Unknown]
  - Rash [Unknown]
  - Drug hypersensitivity [Unknown]
  - Intentional drug misuse [Unknown]
